FAERS Safety Report 15317279 (Version 1)
Quarter: 2018Q3

REPORT INFORMATION
  Report Type: Spontaneous
  Country: US (occurrence: US)
  Receive Date: 20180816
  Receipt Date: 20180816
  Transmission Date: 20181010
  Serious: Yes (Hospitalization)
  Sender: FDA-Public Use
  Company Number: None

PATIENT
  Age: 61 Year
  Sex: Female
  Weight: 76.5 kg

DRUGS (3)
  1. IBUPROFEN. [Concomitant]
     Active Substance: IBUPROFEN
  2. ALENDRONATE [Concomitant]
     Active Substance: ALENDRONATE SODIUM
  3. LEVOTHYROXIN [Suspect]
     Active Substance: LEVOTHYROXINE
     Indication: HYPOTHYROIDISM
     Dosage: ?          OTHER STRENGTH:50 MCG;QUANTITY:90 TABLET(S);?
     Route: 048
     Dates: start: 20180516, end: 20180811

REACTIONS (9)
  - Asthenia [None]
  - Nervousness [None]
  - Hypertension [None]
  - Arthralgia [None]
  - Muscle twitching [None]
  - Heart rate increased [None]
  - Drug hypersensitivity [None]
  - Hypoaesthesia [None]
  - Gait inability [None]

NARRATIVE: CASE EVENT DATE: 20180811
